FAERS Safety Report 13573590 (Version 1)
Quarter: 2017Q2

REPORT INFORMATION
  Report Type: Spontaneous
  Country: US (occurrence: US)
  Receive Date: 20170523
  Receipt Date: 20170523
  Transmission Date: 20170830
  Serious: No
  Sender: FDA-Public Use
  Company Number: US-SHIRE-US201710800

PATIENT
  Sex: Female

DRUGS (1)
  1. XIIDRA [Suspect]
     Active Substance: LIFITEGRAST
     Indication: DRY EYE
     Dosage: 1 GTT, 2X/DAY:BID (12 HOURS APART)
     Route: 047
     Dates: start: 201703

REACTIONS (4)
  - Stomach mass [Unknown]
  - Dysgeusia [Unknown]
  - Eructation [Unknown]
  - Inappropriate schedule of drug administration [Unknown]
